FAERS Safety Report 20897129 (Version 1)
Quarter: 2022Q2

REPORT INFORMATION
  Report Type: Spontaneous
  Country: US (occurrence: None)
  Receive Date: 20220531
  Receipt Date: 20220531
  Transmission Date: 20220720
  Serious: No
  Sender: FDA-Public Use
  Company Number: 2022A171979

PATIENT
  Sex: Male
  Weight: 90.7 kg

DRUGS (2)
  1. FARXIGA [Suspect]
     Active Substance: DAPAGLIFLOZIN PROPANEDIOL
     Indication: Cardiac failure congestive
     Route: 048
     Dates: start: 202110, end: 202112
  2. FARXIGA [Suspect]
     Active Substance: DAPAGLIFLOZIN PROPANEDIOL
     Indication: Cardiac failure congestive
     Route: 048
     Dates: start: 20220430

REACTIONS (3)
  - Cardiac dysfunction [Unknown]
  - Therapeutic response unexpected [Unknown]
  - Ejection fraction decreased [Unknown]
